FAERS Safety Report 12224852 (Version 1)
Quarter: 2016Q1

REPORT INFORMATION
  Report Type: Spontaneous
  Country: US (occurrence: US)
  Receive Date: 20160331
  Receipt Date: 20160331
  Transmission Date: 20160526
  Serious: No
  Sender: FDA-Public Use
  Company Number: US-PFIZER INC-2016144614

PATIENT
  Age: 71 Year
  Sex: Female

DRUGS (1)
  1. CORTISONE ACETATE. [Suspect]
     Active Substance: CORTISONE ACETATE
     Indication: PAIN
     Dosage: UNK

REACTIONS (1)
  - Drug effect incomplete [Unknown]
